FAERS Safety Report 4353500-7 (Version None)
Quarter: 2004Q2

REPORT INFORMATION
  Report Type: 
  Country: None (occurrence: None)
  Receive Date: 20040505
  Receipt Date: 20040324
  Transmission Date: 20050107
  Serious: Yes (Other)
  Sender: FDA-Public Use
  Company Number: BE-MERCK-0404BEL00003

PATIENT
  Sex: Female

DRUGS (7)
  1. ACETYLCYSTEINE [Concomitant]
     Indication: PRODUCTIVE COUGH
     Route: 048
  2. BUDESONIDE [Concomitant]
     Route: 055
  3. BUDESONIDE AND FORMOTEROL FUMARATE [Concomitant]
     Route: 055
     Dates: start: 20010901
  4. CIPROFIBRATE [Concomitant]
     Indication: HYPERCHOLESTEROLAEMIA
     Route: 048
     Dates: start: 19970101
  5. FENOTEROL HYDROBROMIDE AND IPRATROPIUM BROMIDE [Concomitant]
     Route: 055
     Dates: start: 19970101
  6. SINGULAIR [Suspect]
     Indication: ASTHMA
     Route: 048
     Dates: start: 20030220, end: 20030415
  7. SINGULAIR [Suspect]
     Indication: DYSPNOEA
     Route: 048
     Dates: start: 20030220, end: 20030415

REACTIONS (1)
  - TOXIC SKIN ERUPTION [None]
